FAERS Safety Report 6603839-7 (Version None)
Quarter: 2010Q1

REPORT INFORMATION
  Report Type: 
  Country: None (occurrence: None)
  Receive Date: 20100226
  Receipt Date: 20090428
  Transmission Date: 20100710
  Serious: No
  Sender: FDA-Public Use
  Company Number: A0769119A

PATIENT
  Age: 66 Year
  Sex: Male

DRUGS (3)
  1. LAMICTAL CD [Suspect]
     Indication: BIPOLAR DISORDER
     Dosage: 75MG TWICE PER DAY
     Route: 048
     Dates: start: 20010201
  2. TRILEPTAL [Concomitant]
  3. LORAZEPAM [Concomitant]

REACTIONS (4)
  - GLOSSITIS [None]
  - PALATITIS [None]
  - PRURITUS [None]
  - RASH PAPULAR [None]
